FAERS Safety Report 11867377 (Version 1)
Quarter: 2015Q4

REPORT INFORMATION
  Report Type: Report from Study
  Country: US (occurrence: US)
  Receive Date: 20151224
  Receipt Date: 20151224
  Transmission Date: 20160305
  Serious: Yes (Hospitalization)
  Sender: FDA-Public Use
  Company Number: US-ABBVIE-15K-163-1524567-00

PATIENT
  Age: 65 Year
  Sex: Female

DRUGS (4)
  1. HUMIRA [Suspect]
     Active Substance: ADALIMUMAB
     Route: 058
     Dates: start: 201511, end: 20151120
  2. HUMIRA [Suspect]
     Active Substance: ADALIMUMAB
     Indication: PSORIASIS
     Route: 058
     Dates: start: 20151024, end: 20151024
  3. HUMIRA [Suspect]
     Active Substance: ADALIMUMAB
     Indication: PSORIATIC ARTHROPATHY
     Route: 058
     Dates: start: 20151107, end: 20151107
  4. METHOTREXATE [Concomitant]
     Active Substance: METHOTREXATE
     Indication: PRODUCT USED FOR UNKNOWN INDICATION

REACTIONS (10)
  - Ageusia [Unknown]
  - Nasopharyngitis [Unknown]
  - Bone pain [Unknown]
  - Mobility decreased [Unknown]
  - Blood pressure increased [Unknown]
  - Pain in extremity [Unknown]
  - Myalgia [Unknown]
  - Weight decreased [Unknown]
  - Sinus congestion [Unknown]
  - Anosmia [Unknown]

NARRATIVE: CASE EVENT DATE: 2015
